FAERS Safety Report 8906042 (Version 1)
Quarter: 2012Q4

REPORT INFORMATION
  Report Type: Spontaneous
  Country: GB (occurrence: None)
  Receive Date: 20121106
  Receipt Date: 20121106
  Transmission Date: 20130627
  Serious: Yes (Hospitalization)
  Sender: FDA-Public Use
  Company Number: 2012-3287

PATIENT

DRUGS (2)
  1. INCRELEX [Suspect]
     Indication: CROHN^S DISEASE
  2. INCRELEX [Suspect]
     Indication: DRUG USE FOR UNAPPROVED INDICATION

REACTIONS (3)
  - Retinal detachment [None]
  - Blood pressure increased [None]
  - Injection site bruising [None]
